FAERS Safety Report 7151263-3 (Version None)
Quarter: 2010Q4

REPORT INFORMATION
  Report Type: 
  Country: None (occurrence: None)
  Receive Date: 20101210
  Receipt Date: 20101207
  Transmission Date: 20110411
  Serious: Yes (Death, Other)
  Sender: FDA-Public Use
  Company Number: US-JNJFOC-20101103088

PATIENT
  Sex: Female
  Weight: 72.58 kg

DRUGS (5)
  1. DOXIL [Suspect]
     Indication: OVARIAN EPITHELIAL CANCER RECURRENT
     Dosage: UNSPECIFIED DOSE EVERY 4-7 WEEKS FOR 7 YEARS;  CUMULATIVE DOSE 1730 MG/M2
     Route: 042
  2. DOXIL [Suspect]
     Dosage: CUMULATIVE DOSE 1730 MG/M2 OVER 7 YEARS
     Route: 042
  3. CARBOPLATIN [Suspect]
     Indication: OVARIAN CANCER
     Route: 065
  4. TOPOTECAN [Suspect]
     Indication: OVARIAN CANCER
     Route: 065
  5. THIAZIDES [Concomitant]
     Indication: HYPERTENSION

REACTIONS (2)
  - OVARIAN CANCER [None]
  - RENAL FAILURE CHRONIC [None]
